FAERS Safety Report 5597893-1 (Version None)
Quarter: 2007Q4

REPORT INFORMATION
  Report Type: 
  Country: None (occurrence: None)
  Receive Date: 20071221
  Receipt Date: 20061122
  Transmission Date: 20080405
  Serious: Yes (Hospitalization, Other)
  Sender: FDA-Public Use
  Company Number: US200611004916

PATIENT
  Age: 65 Year
  Sex: Female

DRUGS (4)
  1. HUMULIN N [Suspect]
     Indication: DIABETES MELLITUS
     Dosage: UNK, 18 U, 2/D
  2. ILETIN [Suspect]
     Indication: DIABETES MELLITUS
     Dosage: 40 U, DAILY (1/D), 25 U, 20 U, UNKNOWN
     Dates: start: 19600101
  3. INSULIN (INSULIN) [Concomitant]
  4. LANTUS [Concomitant]

REACTIONS (6)
  - BLOOD GLUCOSE DECREASED [None]
  - BLOOD GLUCOSE INCREASED [None]
  - EYE SWELLING [None]
  - GLUCOSE URINE [None]
  - LOSS OF CONSCIOUSNESS [None]
  - METABOLIC DISORDER [None]
